FAERS Safety Report 10064855 (Version 2)
Quarter: 2014Q2

REPORT INFORMATION
  Report Type: Spontaneous
  Country: US (occurrence: US)
  Receive Date: 20140408
  Receipt Date: 20140520
  Transmission Date: 20141212
  Serious: Yes (Death, Life-Threatening, Hospitalization, Other)
  Sender: FDA-Public Use
  Company Number: US-009507513-1404USA004165

PATIENT
  Sex: Male
  Weight: 129.25 kg

DRUGS (3)
  1. JANUVIA [Suspect]
     Indication: TYPE 2 DIABETES MELLITUS
     Dosage: 100 MG, QD
     Route: 048
     Dates: start: 20070112, end: 20110811
  2. METFORMIN [Concomitant]
     Indication: TYPE 2 DIABETES MELLITUS
  3. NOVOLOG [Concomitant]
     Indication: TYPE 2 DIABETES MELLITUS

REACTIONS (11)
  - Adenocarcinoma pancreas [Fatal]
  - Bile duct stent insertion [Unknown]
  - Pancreatobiliary sphincterotomy [Unknown]
  - Pancreatitis [Unknown]
  - Bile duct stent insertion [Unknown]
  - Bile duct stent insertion [Unknown]
  - Peripheral venous disease [Unknown]
  - Bile duct obstruction [Unknown]
  - Flatulence [Unknown]
  - Dyspepsia [Unknown]
  - Cardiac disorder [Unknown]
